FAERS Safety Report 22365888 (Version 3)
Quarter: 2023Q2

REPORT INFORMATION
  Report Type: Spontaneous
  Country: PL (occurrence: PL)
  Receive Date: 20230525
  Receipt Date: 20230626
  Transmission Date: 20230722
  Serious: Yes (Other)
  Sender: FDA-Public Use
  Company Number: PL-002147023-NVSC2023PL117281

PATIENT
  Age: 22 Year
  Sex: Female

DRUGS (1)
  1. INTERFERON BETA-1B [Suspect]
     Active Substance: INTERFERON BETA-1B
     Indication: Relapsing-remitting multiple sclerosis
     Dosage: UNK
     Route: 065
     Dates: start: 201602, end: 201702

REACTIONS (13)
  - Multiple sclerosis relapse [Unknown]
  - Monoparesis [Unknown]
  - Diplopia [Unknown]
  - Dizziness [Unknown]
  - Paraparesis [Unknown]
  - Gait disturbance [Unknown]
  - Visual acuity reduced [Unknown]
  - Balance disorder [Unknown]
  - Bladder sphincter atony [Unknown]
  - Dysaesthesia [Unknown]
  - Drug ineffective [Unknown]
  - Atonic urinary bladder [Unknown]
  - Ataxia [Unknown]

NARRATIVE: CASE EVENT DATE: 20160401
